FAERS Safety Report 25152617 (Version 1)
Quarter: 2025Q2

REPORT INFORMATION
  Report Type: Spontaneous
  Country: US (occurrence: US)
  Receive Date: 20250402
  Receipt Date: 20250402
  Transmission Date: 20250717
  Serious: Yes (Other)
  Sender: MERCK SHARP AND DOHME
  Company Number: US-009507513-2270310

PATIENT
  Sex: Female

DRUGS (2)
  1. KEYTRUDA [Suspect]
     Active Substance: PEMBROLIZUMAB
     Indication: Endometrial cancer
     Route: 042
  2. LENVIMA [Suspect]
     Active Substance: LENVATINIB
     Indication: Endometrial cancer
     Route: 042

REACTIONS (6)
  - Neuropathy peripheral [Unknown]
  - Thyroid hormones increased [Unknown]
  - Screaming [Unknown]
  - Transient global amnesia [Unknown]
  - Hypertension [Unknown]
  - Dizziness [Unknown]
